FAERS Safety Report 9921066 (Version 1)
Quarter: 2014Q1

REPORT INFORMATION
  Report Type: Spontaneous
  Country: US (occurrence: US)
  Receive Date: 20140225
  Receipt Date: 20140225
  Transmission Date: 20141002
  Serious: Yes (Hospitalization)
  Sender: FDA-Public Use
  Company Number: US-BRISTOL-MYERS SQUIBB COMPANY-20214904

PATIENT
  Age: 82 Year
  Sex: Female
  Weight: 63.49 kg

DRUGS (6)
  1. ELIQUIS [Suspect]
     Dosage: DAILY OR TWICE A DAY
     Dates: start: 201311
  2. TOPROL XL [Concomitant]
  3. AMLODIPINE [Concomitant]
     Indication: BLOOD PRESSURE
  4. CRESTOR [Concomitant]
     Dosage: CRESTOR LOW DOSE
  5. PROTONIX [Concomitant]
  6. AMIODARONE [Concomitant]

REACTIONS (1)
  - Haemoglobin decreased [Recovered/Resolved]
